FAERS Safety Report 11279503 (Version 1)
Quarter: 2015Q3

REPORT INFORMATION
  Report Type: Spontaneous
  Country: US (occurrence: None)
  Receive Date: 20150716
  Receipt Date: 20150716
  Transmission Date: 20151125
  Serious: Yes (Other)
  Sender: FDA-Public Use
  Company Number: None

PATIENT
  Sex: Male

DRUGS (1)
  1. TOPIRAMATE. [Suspect]
     Active Substance: TOPIRAMATE
     Indication: SCHIZOAFFECTIVE DISORDER
     Dosage: 1 BID PO
     Route: 048
     Dates: start: 201404, end: 201406

REACTIONS (6)
  - Irritability [None]
  - Psychomotor hyperactivity [None]
  - Product substitution issue [None]
  - Weight decreased [None]
  - Bradyphrenia [None]
  - Confusional state [None]
